FAERS Safety Report 21693195 (Version 1)
Quarter: 2022Q4

REPORT INFORMATION
  Report Type: Spontaneous
  Country: US (occurrence: US)
  Receive Date: 20221207
  Receipt Date: 20221207
  Transmission Date: 20230113
  Serious: No
  Sender: FDA-Public Use
  Company Number: US-UNITED THERAPEUTICS-UNT-2022-026216

PATIENT
  Sex: Female
  Weight: 95.238 kg

DRUGS (7)
  1. REMODULIN [Suspect]
     Active Substance: TREPROSTINIL
     Indication: Pulmonary arterial hypertension
     Dosage: 0.010 ?G/KG, CONTINUING  [PRE-FILLED WITH 2.2 ML PER CASSETTE. REMUNITY PUMP RATE 23 MCL PER HOUR]
     Route: 058
     Dates: start: 20221025
  2. REMODULIN [Suspect]
     Active Substance: TREPROSTINIL
     Dosage: UNK, CONTINUING [PRE-FILLED WITH 2.6 ML PER CASSETTE, AT PUMP RATE 23 MCL PER HOUR]
     Route: 058
     Dates: start: 2022
  3. REMODULIN [Suspect]
     Active Substance: TREPROSTINIL
     Dosage: UNK, CONTINUING
     Route: 058
     Dates: start: 2022
  4. REMODULIN [Suspect]
     Active Substance: TREPROSTINIL
     Indication: Pulmonary arterial hypertension
     Dosage: 0.012 ?G/KG, CONTINUING (SELF-FILL CASSETTE WITH 2.4 ML, PUMP RATE OF 27 MCL PER HOUR)
     Route: 058
     Dates: start: 202211
  5. REMODULIN [Suspect]
     Active Substance: TREPROSTINIL
     Dosage: UNK, CONTINUING
     Route: 058
     Dates: start: 20221109
  6. AMBRISENTAN [Concomitant]
     Active Substance: AMBRISENTAN
     Indication: Product used for unknown indication
     Dosage: UNK
     Route: 065
  7. ALYQ [Concomitant]
     Active Substance: TADALAFIL
     Indication: Product used for unknown indication
     Dosage: UNK
     Route: 065

REACTIONS (14)
  - Headache [Not Recovered/Not Resolved]
  - Flushing [Not Recovered/Not Resolved]
  - Dyspnoea exertional [Not Recovered/Not Resolved]
  - Infusion site pain [Unknown]
  - Infusion site swelling [Unknown]
  - Infusion site warmth [Unknown]
  - Depression [Unknown]
  - Emotional disorder [Unknown]
  - Anxiety [Unknown]
  - Infusion site haemorrhage [Unknown]
  - Back pain [Unknown]
  - Pain [Unknown]
  - Device dislocation [Recovered/Resolved]
  - Device difficult to use [Unknown]

NARRATIVE: CASE EVENT DATE: 20220101
